FAERS Safety Report 9266621 (Version 4)
Quarter: 2013Q4

REPORT INFORMATION
  Report Type: Report from Study
  Country: CA (occurrence: CA)
  Receive Date: 20130502
  Receipt Date: 20131031
  Transmission Date: 20140711
  Serious: Yes (Hospitalization)
  Sender: FDA-Public Use
  Company Number: CA-JNJFOC-20130308469

PATIENT
  Age: 57 Year
  Sex: Male
  Weight: 97 kg

DRUGS (4)
  1. INFLIXIMAB [Suspect]
     Indication: CROHN^S DISEASE
     Dosage: PRN
     Route: 042
     Dates: start: 20120531
  2. ACETYLSALICYLIC ACID [Concomitant]
     Route: 065
  3. CRESTOR [Concomitant]
     Indication: BLOOD CHOLESTEROL INCREASED
     Route: 065
  4. PREDNISONE [Concomitant]
     Route: 065

REACTIONS (3)
  - Intestinal obstruction [Recovered/Resolved]
  - Crohn^s disease [Recovered/Resolved]
  - Gastrointestinal disorder [Not Recovered/Not Resolved]
